FAERS Safety Report 8921873 (Version 21)
Quarter: 2015Q3

REPORT INFORMATION
  Report Type: Report from Study
  Country: CA (occurrence: CA)
  Receive Date: 20121121
  Receipt Date: 20150910
  Transmission Date: 20151125
  Serious: Yes (Other)
  Sender: FDA-Public Use
  Company Number: CA-ROCHE-1156093

PATIENT
  Age: 46 Year
  Sex: Female
  Weight: 78 kg

DRUGS (22)
  1. ACTEMRA [Suspect]
     Active Substance: TOCILIZUMAB
     Indication: RHEUMATOID ARTHRITIS
     Dosage: LAST DOSE WAS RECEIVED ON 09/JUN/2015
     Route: 042
     Dates: start: 20140716
  2. HYDROMORPHONE HYDROCHLORIDE. [Suspect]
     Active Substance: HYDROMORPHONE HYDROCHLORIDE
     Indication: PAIN
     Route: 065
     Dates: end: 20140124
  3. PREDNISONE. [Concomitant]
     Active Substance: PREDNISONE
  4. ACTEMRA [Suspect]
     Active Substance: TOCILIZUMAB
     Route: 042
     Dates: start: 20150102
  5. NASONEX [Concomitant]
     Active Substance: MOMETASONE FUROATE
     Route: 065
  6. TYLENOL [Concomitant]
     Active Substance: ACETAMINOPHEN
     Indication: PREMEDICATION
     Route: 048
     Dates: start: 20120614, end: 20140124
  7. SOLU-MEDROL [Concomitant]
     Active Substance: METHYLPREDNISOLONE SODIUM SUCCINATE
     Indication: PREMEDICATION
     Route: 042
     Dates: start: 20120614, end: 20140124
  8. WELLBUTRIN [Concomitant]
     Active Substance: BUPROPION HYDROCHLORIDE
  9. ATACAND [Concomitant]
     Active Substance: CANDESARTAN CILEXETIL
  10. BENADRYL [Concomitant]
     Active Substance: DIPHENHYDRAMINE HYDROCHLORIDE
     Indication: PREMEDICATION
     Route: 048
     Dates: start: 20120614, end: 20140124
  11. RITUXAN [Suspect]
     Active Substance: RITUXIMAB
     Indication: RHEUMATOID ARTHRITIS
     Dosage: DATE OF THE MOST RECENT DOSE : 10/DEC/2012, 04/SEP/2013, 10/JAN/2014.
     Route: 042
     Dates: start: 20120614, end: 20140124
  12. ACTEMRA [Suspect]
     Active Substance: TOCILIZUMAB
     Route: 042
     Dates: start: 20150908
  13. IMURAN [Concomitant]
     Active Substance: AZATHIOPRINE
  14. GRAVOL [Concomitant]
     Active Substance: DIMENHYDRINATE
  15. PALAFER [Concomitant]
     Active Substance: FERROUS FUMARATE
  16. SALAGEN [Concomitant]
     Active Substance: PILOCARPINE HYDROCHLORIDE
     Indication: SJOGREN^S SYNDROME
  17. ACTEMRA [Suspect]
     Active Substance: TOCILIZUMAB
     Route: 042
     Dates: start: 20150130
  18. CELEBREX [Concomitant]
     Active Substance: CELECOXIB
  19. CETIRIZINE [Concomitant]
     Active Substance: CETIRIZINE HYDROCHLORIDE
  20. ACTEMRA [Suspect]
     Active Substance: TOCILIZUMAB
     Route: 042
     Dates: start: 20150609
  21. SYNTHROID [Concomitant]
     Active Substance: LEVOTHYROXINE SODIUM
  22. NEXIUM [Concomitant]
     Active Substance: ESOMEPRAZOLE MAGNESIUM

REACTIONS (24)
  - Heart rate abnormal [Unknown]
  - Pain [Not Recovered/Not Resolved]
  - Heart rate irregular [Unknown]
  - Post procedural discharge [Not Recovered/Not Resolved]
  - Productive cough [Not Recovered/Not Resolved]
  - Infusion related reaction [Unknown]
  - Cough [Unknown]
  - Nasopharyngitis [Not Recovered/Not Resolved]
  - Erythema [Recovering/Resolving]
  - Joint swelling [Not Recovered/Not Resolved]
  - Insomnia [Unknown]
  - Sinus disorder [Unknown]
  - Blood pressure diastolic increased [Unknown]
  - Cellulitis [Recovered/Resolved]
  - Blood pressure increased [Unknown]
  - Weight decreased [Unknown]
  - Pain [Unknown]
  - Drug ineffective [Unknown]
  - Arthralgia [Recovering/Resolving]
  - Blood pressure increased [Unknown]
  - Diarrhoea [Unknown]
  - Gout [Unknown]
  - Pain [Unknown]
  - Weight increased [Unknown]

NARRATIVE: CASE EVENT DATE: 20120701
